FAERS Safety Report 16537480 (Version 4)
Quarter: 2020Q2

REPORT INFORMATION
  Report Type: Spontaneous
  Country: JP (occurrence: JP)
  Receive Date: 20190708
  Receipt Date: 20200616
  Transmission Date: 20200713
  Serious: Yes (Death, Life-Threatening, Hospitalization, Disabling, Other)
  Sender: FDA-Public Use
  Company Number: JP-009507513-1907JPN000018J

PATIENT
  Age: 67 Year
  Sex: Male
  Weight: 60 kg

DRUGS (2)
  1. KEYTRUDA [Suspect]
     Active Substance: PEMBROLIZUMAB
     Indication: TRANSITIONAL CELL CARCINOMA
     Dosage: 200 MILLIGRAM, Q3W
     Route: 041
     Dates: start: 20180509, end: 20181127
  2. JADENU [Suspect]
     Active Substance: DEFERASIROX
     Indication: SERUM FERRITIN INCREASED
     Dosage: UNK
     Route: 048
     Dates: start: 20191108, end: 20191202

REACTIONS (9)
  - Thyroiditis [Recovered/Resolved]
  - Respiratory failure [Fatal]
  - Nausea [Unknown]
  - Myelodysplastic syndrome [Not Recovered/Not Resolved]
  - Pyelonephritis [Recovered/Resolved]
  - Hypopituitarism [Not Recovered/Not Resolved]
  - Adrenal insufficiency [Unknown]
  - Serum ferritin increased [Unknown]
  - Hypothyroidism [Unknown]

NARRATIVE: CASE EVENT DATE: 20181227
